FAERS Safety Report 5629955-4 (Version None)
Quarter: 2008Q1

REPORT INFORMATION
  Report Type: 
  Country: None (occurrence: None)
  Receive Date: 20080218
  Receipt Date: 20080206
  Transmission Date: 20080703
  Serious: Yes (Death)
  Sender: FDA-Public Use
  Company Number: CA-ROCHE-546128

PATIENT
  Age: 57 Year
  Sex: Female
  Weight: 52 kg

DRUGS (9)
  1. PEGASYS [Suspect]
     Indication: HEPATITIS C
     Route: 058
     Dates: start: 20070918, end: 20080101
  2. COPEGUS [Suspect]
     Indication: HEPATITIS C
     Route: 048
     Dates: start: 20070918, end: 20080101
  3. OXYCONTIN [Suspect]
     Dosage: STRENGTH REPORTED: 20MG
     Route: 048
     Dates: end: 20080101
  4. OXYCONTIN [Suspect]
     Dosage: STRENGTH REPORTED: 40MG
     Route: 048
     Dates: end: 20080101
  5. TOPIRAMATE [Concomitant]
     Route: 048
     Dates: end: 20080101
  6. CARBAMAZEPINE [Concomitant]
     Route: 048
     Dates: end: 20080101
  7. ZOLOFT [Concomitant]
     Indication: DEPRESSION
     Route: 048
     Dates: end: 20080101
  8. ALTACE [Concomitant]
     Route: 048
  9. CLONAZEPAM [Concomitant]
     Route: 048

REACTIONS (2)
  - NONSPECIFIC REACTION [None]
  - SUDDEN DEATH [None]
